FAERS Safety Report 23786474 (Version 1)
Quarter: 2024Q2

REPORT INFORMATION
  Report Type: Spontaneous
  Country: US (occurrence: US)
  Receive Date: 20240426
  Receipt Date: 20240426
  Transmission Date: 20240715
  Serious: No
  Sender: FDA-Public Use
  Company Number: US-ABBVIE-5734044

PATIENT
  Sex: Male

DRUGS (1)
  1. BOTOX [Suspect]
     Active Substance: ONABOTULINUMTOXINA
     Indication: Torticollis
     Dosage: TIME INTERVAL: AS NECESSARY: LAST ADMIN DATE WAS TAKEN AS 2024
     Route: 065
     Dates: start: 20240326

REACTIONS (2)
  - Syncope [Recovered/Resolved]
  - Fear of injection [Unknown]

NARRATIVE: CASE EVENT DATE: 20240101
